FAERS Safety Report 13679649 (Version 1)
Quarter: 2017Q2

REPORT INFORMATION
  Report Type: Spontaneous
  Country: VE (occurrence: VE)
  Receive Date: 20170622
  Receipt Date: 20170622
  Transmission Date: 20170830
  Serious: Yes (Other)
  Sender: FDA-Public Use
  Company Number: VE-PFIZER INC-2017266680

PATIENT
  Sex: Male

DRUGS (2)
  1. EPAMIN [Suspect]
     Active Substance: PHENYTOIN SODIUM
     Indication: CEREBROVASCULAR ACCIDENT
  2. EPAMIN [Suspect]
     Active Substance: PHENYTOIN SODIUM
     Indication: CEREBRAL ISCHAEMIA
     Dosage: 125 MG, DAILY

REACTIONS (2)
  - Seizure [Unknown]
  - Product use in unapproved indication [Unknown]
